FAERS Safety Report 5414668-4 (Version None)
Quarter: 2007Q3

REPORT INFORMATION
  Report Type: 
  Country: None (occurrence: None)
  Receive Date: 20070813
  Receipt Date: 20070711
  Transmission Date: 20080115
  Serious: Yes (Other)
  Sender: FDA-Public Use
  Company Number: 2007RR-08670

PATIENT
  Age: 15 Year
  Sex: Female

DRUGS (1)
  1. MINOCYCLINE HYDROCHLORIDE [Suspect]
     Dosage: BID

REACTIONS (8)
  - ANOREXIA [None]
  - ARTHRALGIA [None]
  - LYMPHADENOPATHY [None]
  - MALAISE [None]
  - MYALGIA [None]
  - POLYARTERITIS NODOSA [None]
  - PYREXIA [None]
  - RASH [None]
